FAERS Safety Report 7616722-5 (Version None)
Quarter: 2011Q3

REPORT INFORMATION
  Report Type: 
  Country: None (occurrence: None)
  Receive Date: 20110718
  Receipt Date: 20110211
  Transmission Date: 20111222
  Serious: Yes (Hospitalization)
  Sender: FDA-Public Use
  Company Number: US-BIOGENIDEC-2011BI007109

PATIENT
  Age: 41 Year
  Sex: Male

DRUGS (1)
  1. TYSABRI [Suspect]
     Indication: MULTIPLE SCLEROSIS
     Route: 042
     Dates: start: 20101202, end: 20101202

REACTIONS (3)
  - LOWER LIMB FRACTURE [None]
  - MUSCULAR WEAKNESS [None]
  - FALL [None]
